FAERS Safety Report 18968193 (Version 1)
Quarter: 2021Q1

REPORT INFORMATION
  Report Type: Spontaneous
  Country: US (occurrence: US)
  Receive Date: 20210304
  Receipt Date: 20210304
  Transmission Date: 20210420
  Serious: No
  Sender: FDA-Public Use
  Company Number: US-UNITED THERAPEUTICS-UNT-2021-002356

PATIENT
  Sex: Female
  Weight: 74.83 kg

DRUGS (4)
  1. REMODULIN [Suspect]
     Active Substance: TREPROSTINIL
     Dosage: UNK, CONTINUING
     Route: 058
  2. REMODULIN [Suspect]
     Active Substance: TREPROSTINIL
     Dosage: 0.138 ?G/KG, CONTINUING
     Route: 058
  3. MEPILEX [Suspect]
     Active Substance: SILICON
     Indication: INFECTION PROPHYLAXIS
     Route: 061
  4. REMODULIN [Suspect]
     Active Substance: TREPROSTINIL
     Indication: PULMONARY ARTERIAL HYPERTENSION
     Dosage: UNK, CONTINUING
     Route: 058
     Dates: start: 20190520

REACTIONS (3)
  - Infusion site pruritus [Unknown]
  - Infusion site erythema [Unknown]
  - Dermatitis contact [Unknown]
